FAERS Safety Report 4704099-4 (Version None)
Quarter: 2005Q2

REPORT INFORMATION
  Report Type: 
  Country: None (occurrence: None)
  Receive Date: 20050629
  Receipt Date: 20050525
  Transmission Date: 20051028
  Serious: Yes (Life-Threatening)
  Sender: FDA-Public Use
  Company Number: 11276

PATIENT
  Age: 42 Year
  Sex: Female

DRUGS (5)
  1. METHOTREXATE [Suspect]
     Indication: LYMPHOMA
     Dosage: IV
     Route: 042
     Dates: start: 20040722, end: 20040808
  2. ETOPOSIDE [Suspect]
     Indication: LYMPHOMA
     Dosage: IV
     Route: 042
     Dates: start: 20040722, end: 20040808
  3. CYCLOPHOSPHAMIDE [Suspect]
     Indication: LYMPHOMA
     Dosage: IV
     Route: 042
     Dates: start: 20040722, end: 20040808
  4. PREDNISOLONE [Suspect]
     Indication: LYMPHOMA
     Dosage: PO
     Route: 048
     Dates: start: 20040722, end: 20040808
  5. NEUPOGEN [Concomitant]

REACTIONS (17)
  - ACUTE RESPIRATORY FAILURE [None]
  - ANOREXIA [None]
  - ASCITES [None]
  - ATELECTASIS [None]
  - BLOOD PRESSURE DECREASED [None]
  - CANDIDIASIS [None]
  - CONSTIPATION [None]
  - DEPRESSED LEVEL OF CONSCIOUSNESS [None]
  - DRUG INEFFECTIVE [None]
  - HEART RATE INCREASED [None]
  - HEPATIC ENZYME INCREASED [None]
  - ILEUS [None]
  - LEUKOPENIA [None]
  - OEDEMA [None]
  - PLEURAL EFFUSION [None]
  - PSEUDOMONAS INFECTION [None]
  - STAPHYLOCOCCAL INFECTION [None]
